FAERS Safety Report 5377695-1 (Version None)
Quarter: 2007Q3

REPORT INFORMATION
  Report Type: 
  Country: None (occurrence: None)
  Receive Date: 20070703
  Receipt Date: 20070703
  Transmission Date: 20080115
  Serious: Yes (Death)
  Sender: FDA-Public Use
  Company Number: US-ROXANE LABORATORIES, INC-2007-DE-03830GD

PATIENT
  Age: 11 Year
  Sex: Male

DRUGS (6)
  1. AMANTADINE HCL [Suspect]
     Indication: RABIES
  2. MIDAZOLAM HCL [Suspect]
     Indication: RABIES
  3. KETAMINE HCL [Suspect]
     Indication: RABIES
  4. RIBAVIRIN [Suspect]
     Indication: RABIES
     Route: 042
  5. TETRAHYDROBIOPTERIN [Suspect]
     Indication: RABIES
  6. COENZYME Q10 [Suspect]
     Indication: RABIES

REACTIONS (11)
  - ATRIOVENTRICULAR BLOCK [None]
  - AUTONOMIC NERVOUS SYSTEM IMBALANCE [None]
  - BRAIN OEDEMA [None]
  - CEREBROVASCULAR SPASM [None]
  - CONVULSION [None]
  - DIABETES INSIPIDUS [None]
  - DRUG INEFFECTIVE [None]
  - INAPPROPRIATE ANTIDIURETIC HORMONE SECRETION [None]
  - PANCREATIC ENZYMES INCREASED [None]
  - RENAL FAILURE [None]
  - THROMBOPHLEBITIS SUPERFICIAL [None]
